FAERS Safety Report 8767559 (Version 1)
Quarter: 2012Q4

REPORT INFORMATION
  Report Type: 
  Country: DK (occurrence: NO)
  Receive Date: 20120904
  Receipt Date: 20120904
  Transmission Date: 20130627
  Serious: Yes (Other)
  Sender: FDA-Public Use
  Company Number: NO-FRI-1000038256

PATIENT
  Sex: Female

DRUGS (5)
  1. ESCITALOPRAM [Suspect]
     Indication: DEPRESSION
     Dosage: 40 mg
     Dates: start: 201107, end: 20111229
  2. ESCITALOPRAM [Suspect]
     Dosage: 20 mg
     Dates: start: 20111229, end: 2012
  3. ESCITALOPRAM [Suspect]
     Dosage: 5 mg
     Dates: start: 2012, end: 201206
  4. IMOVANE [Concomitant]
     Indication: SLEEP DISORDER
     Dates: end: 201206
  5. MAREVAN [Concomitant]
     Indication: PRODUCT USED FOR UNKNOWN INDICATION

REACTIONS (10)
  - Memory impairment [Recovering/Resolving]
  - Apathy [Recovering/Resolving]
  - Neurological symptom [Recovering/Resolving]
  - Decreased appetite [Recovering/Resolving]
  - Burning sensation [Recovering/Resolving]
  - Pain [Recovering/Resolving]
  - Balance disorder [Recovering/Resolving]
  - Mobility decreased [Recovering/Resolving]
  - Medication error [Recovering/Resolving]
  - Prescribed overdose [Recovering/Resolving]
